FAERS Safety Report 12342969 (Version 1)
Quarter: 2016Q2

REPORT INFORMATION
  Report Type: Spontaneous
  Country: US (occurrence: US)
  Receive Date: 20160506
  Receipt Date: 20160506
  Transmission Date: 20160815
  Serious: No
  Sender: FDA-Public Use
  Company Number: US-PFIZER INC-2016238823

PATIENT
  Age: 72 Year
  Sex: Female
  Weight: 94.8 kg

DRUGS (1)
  1. CAMPTOSAR [Suspect]
     Active Substance: IRINOTECAN HYDROCHLORIDE
     Indication: COLON CANCER
     Dosage: UNK
     Dates: start: 2015

REACTIONS (2)
  - Paraesthesia [Unknown]
  - Upper respiratory tract infection [Unknown]
